FAERS Safety Report 8962884 (Version 1)
Quarter: 2012Q4

REPORT INFORMATION
  Report Type: 
  Country: JP (occurrence: JP)
  Receive Date: 20121213
  Receipt Date: 20121213
  Transmission Date: 20130627
  Serious: Yes (Hospitalization, Other)
  Sender: FDA-Public Use
  Company Number: JP-BAXTER-2012BAX026597

PATIENT
  Age: 60 Year
  Sex: Male

DRUGS (2)
  1. DIANEAL-N PD-4 1.5 [Suspect]
     Indication: PERITONEAL DIALYSIS
     Route: 033
     Dates: start: 20121121
  2. DIANEAL-N PD-4 1.5 [Suspect]
     Route: 033
     Dates: start: 20121121

REACTIONS (4)
  - Pyrexia [Recovering/Resolving]
  - Diarrhoea [Recovering/Resolving]
  - Nasopharyngitis [Recovering/Resolving]
  - Gastrointestinal disorder [Recovering/Resolving]
